FAERS Safety Report 8991004 (Version 1)
Quarter: 2012Q4

REPORT INFORMATION
  Report Type: Spontaneous
  Country: JP (occurrence: None)
  Receive Date: 20121220
  Receipt Date: 20121220
  Transmission Date: 20130627
  Serious: Yes (Hospitalization)
  Sender: FDA-Public Use
  Company Number: MIN-00898

PATIENT
  Age: 70 Year
  Sex: Female
  Weight: 55 kg

DRUGS (2)
  1. MINOCYCLINE [Suspect]
     Indication: JOINT INFECTION
  2. GLIMEPIRIDE [Concomitant]

REACTIONS (13)
  - Melaena [None]
  - Pyrexia [None]
  - Fatigue [None]
  - Weight decreased [None]
  - Paraesthesia [None]
  - Paraesthesia [None]
  - Oedema peripheral [None]
  - Feeling hot [None]
  - Arthralgia [None]
  - Peroneal nerve palsy [None]
  - Mononeuropathy multiplex [None]
  - Vasculitis [None]
  - Polyarteritis nodosa [None]
